FAERS Safety Report 21451550 (Version 1)
Quarter: 2022Q4

REPORT INFORMATION
  Report Type: Spontaneous
  Country: CN (occurrence: CN)
  Receive Date: 20221013
  Receipt Date: 20221013
  Transmission Date: 20230112
  Serious: Yes (Other)
  Sender: FDA-Public Use
  Company Number: CN-ANIPHARMA-2022-CN-000351

PATIENT
  Age: 79 Year
  Sex: Male
  Weight: 50 kg

DRUGS (2)
  1. BICALUTAMIDE [Suspect]
     Active Substance: BICALUTAMIDE
     Indication: Prostate cancer
     Dosage: 50 MG DAILY
     Route: 048
     Dates: start: 20220823, end: 20221007
  2. GOSERELIN ACETATE [Concomitant]
     Active Substance: GOSERELIN ACETATE
     Dosage: ONCE EVERY 28 DAYS
     Route: 058
     Dates: start: 20220531

REACTIONS (2)
  - Pruritus [Recovered/Resolved]
  - Skin atrophy [Recovering/Resolving]

NARRATIVE: CASE EVENT DATE: 20220926
